FAERS Safety Report 21129935 (Version 1)
Quarter: 2022Q3

REPORT INFORMATION
  Report Type: Spontaneous
  Country: JP (occurrence: JP)
  Receive Date: 20220726
  Receipt Date: 20220726
  Transmission Date: 20221027
  Serious: Yes (Hospitalization)
  Sender: FDA-Public Use
  Company Number: JP-NOVARTISPH-NVSJ2022JP094556

PATIENT
  Age: 90 Year
  Sex: Male
  Weight: 64.1 kg

DRUGS (16)
  1. XYLOCAINE [Suspect]
     Active Substance: LIDOCAINE HYDROCHLORIDE
     Indication: Local anaesthesia
     Dosage: 20 ML X 1
     Route: 008
     Dates: start: 20220520, end: 20220520
  2. HERBALS [Concomitant]
     Active Substance: HERBALS
     Indication: Product used for unknown indication
     Dosage: 1 PACK/DOSE, TID BEFORE EACH MEAL
     Route: 048
  3. VOGLIBOSE [Concomitant]
     Active Substance: VOGLIBOSE
     Indication: Product used for unknown indication
     Dosage: 1 DOSAGE FORM, TID, JUST BEFORE EACH MEAL
     Route: 048
  4. LINAGLIPTIN [Concomitant]
     Active Substance: LINAGLIPTIN
     Indication: Product used for unknown indication
     Dosage: 1 DOSAGE FORM, QD, AFTER BREAKFAST
     Route: 048
  5. AZOSEMIDE [Concomitant]
     Active Substance: AZOSEMIDE
     Indication: Product used for unknown indication
     Dosage: 1 DOSAGE FORM, QD, AFTER BREAKFAST
     Route: 048
  6. ISOSORBIDE MONONITRATE [Concomitant]
     Active Substance: ISOSORBIDE MONONITRATE
     Indication: Product used for unknown indication
     Dosage: 1 DOSAGE FORM, BID, AFTER BREAKFAST AND DINNER
     Route: 048
  7. TICLOPIDINE HYDROCHLORIDE [Concomitant]
     Active Substance: TICLOPIDINE HYDROCHLORIDE
     Indication: Product used for unknown indication
     Dosage: 1 DOSAGE FORM, BID, AFTER BREAKFAST AND DINNER
     Route: 048
  8. PREGABALIN [Concomitant]
     Active Substance: PREGABALIN
     Indication: Product used for unknown indication
     Dosage: 1 DOSAGE FORM, BID, AFTER BREAKFAST AND DINNER
     Route: 048
  9. TOCOPHERYL NICOTINATE [Concomitant]
     Active Substance: TOCOPHERYL NICOTINATE, D-.ALPHA.
     Indication: Product used for unknown indication
     Dosage: 1 DOSAGE FORM, BID, AFTER BREAKFAST AND DINNER
     Route: 048
  10. BERAPROST SODIUM [Concomitant]
     Active Substance: BERAPROST SODIUM
     Indication: Product used for unknown indication
     Dosage: 1 DOSAGE FORM, BID, AFTER BREAKFAST AND DINNER
     Route: 048
  11. KALLIDINOGENASE [Concomitant]
     Active Substance: KALLIDINOGENASE
     Indication: Product used for unknown indication
     Dosage: 1 DOSAGE FORM, BID, AFTER BREAKFAST AND DINNER
     Route: 048
  12. ICOSAPENT ETHYL [Concomitant]
     Active Substance: ICOSAPENT ETHYL
     Indication: Product used for unknown indication
     Dosage: 1 PACK/DOSE, BID, IMMEDIATELY AFTER BREAKFAST AND DINNER
     Route: 048
  13. MAGNESIUM OXIDE [Concomitant]
     Active Substance: MAGNESIUM OXIDE
     Indication: Product used for unknown indication
     Dosage: 1.5 G, QD, BEFORE BEDTIME
     Route: 048
  14. BROTIZOLAM [Concomitant]
     Active Substance: BROTIZOLAM
     Indication: Product used for unknown indication
     Dosage: 1 DOSAGE FORM, QD, BEFORE BEDTIME
     Route: 048
  15. ISOTONIC SODIUM CHLORIDE SOLUTION [Concomitant]
     Active Substance: SODIUM CHLORIDE
     Indication: Product used for unknown indication
     Dosage: 500 ML
     Route: 041
     Dates: start: 20220520
  16. NICARDIPINE HYDROCHLORIDE [Concomitant]
     Active Substance: NICARDIPINE HYDROCHLORIDE
     Indication: Blood pressure increased
     Dosage: 2 MG/HR
     Route: 065
     Dates: start: 20220520, end: 20220521

REACTIONS (1)
  - Local anaesthetic systemic toxicity [Recovered/Resolved]

NARRATIVE: CASE EVENT DATE: 20220520
